FAERS Safety Report 10471087 (Version 2)
Quarter: 2014Q3

REPORT INFORMATION
  Report Type: Spontaneous
  Country: US (occurrence: US)
  Receive Date: 20140923
  Receipt Date: 20140923
  Transmission Date: 20150326
  Serious: Yes (Hospitalization)
  Sender: FDA-Public Use
  Company Number: PHHY2014US099703

PATIENT
  Age: 78 Year
  Sex: Male

DRUGS (2)
  1. JAKAFI [Suspect]
     Active Substance: RUXOLITINIB
     Indication: MYELOFIBROSIS
     Dosage: 15 MG, BID
     Route: 048
  2. EXJADE [Suspect]
     Active Substance: DEFERASIROX
     Dosage: 5 MG, BID
     Route: 048
     Dates: start: 20120320

REACTIONS (5)
  - Orthostatic hypotension [Recovering/Resolving]
  - Syncope [Recovering/Resolving]
  - Autonomic nervous system imbalance [Recovering/Resolving]
  - Asthenia [Recovering/Resolving]
  - Mineral deficiency [Recovering/Resolving]

NARRATIVE: CASE EVENT DATE: 20140722
